FAERS Safety Report 7502863-X (Version None)
Quarter: 2011Q2

REPORT INFORMATION
  Report Type: 
  Country: None (occurrence: None)
  Receive Date: 20110525
  Receipt Date: 20100917
  Transmission Date: 20111010
  Serious: No
  Sender: FDA-Public Use
  Company Number: US-NOVEN-ALL1-2010-04297

PATIENT

DRUGS (2)
  1. SINGULAIR [Concomitant]
     Dosage: 5 MG, 1X/DAY:QD
     Route: 048
     Dates: start: 20050101
  2. DAYTRANA [Suspect]
     Dosage: 10 MG, 1X/DAY:QD
     Route: 062
     Dates: start: 20060101

REACTIONS (3)
  - HEADACHE [None]
  - DECREASED APPETITE [None]
  - PRODUCT QUALITY ISSUE [None]
